FAERS Safety Report 9713807 (Version 1)
Quarter: 2013Q4

REPORT INFORMATION
  Report Type: Spontaneous
  Country: US (occurrence: None)
  Receive Date: 20131126
  Receipt Date: 20131126
  Transmission Date: 20140711
  Serious: Yes (Death)
  Sender: FDA-Public Use
  Company Number: None

PATIENT
  Age: 26 Year
  Sex: Male
  Weight: 68.04 kg

DRUGS (1)
  1. METHADONE [Suspect]
     Indication: DRUG DEPENDENCE
     Route: 048

REACTIONS (4)
  - Drug level increased [None]
  - Drug abuse [None]
  - Respiratory arrest [None]
  - Cardiac disorder [None]
